FAERS Safety Report 5410537-4 (Version None)
Quarter: 2007Q3

REPORT INFORMATION
  Report Type: 
  Country: None (occurrence: None)
  Receive Date: 20070810
  Receipt Date: 20070221
  Transmission Date: 20080115
  Serious: No
  Sender: FDA-Public Use
  Company Number: A0640426A

PATIENT
  Age: 27 Year
  Sex: Female

DRUGS (4)
  1. PAROXETINE [Suspect]
     Indication: DEPRESSION
     Route: 048
     Dates: start: 20040101
  2. WELLBUTRIN [Suspect]
     Route: 048
     Dates: start: 20010101
  3. ALLEGRA [Concomitant]
  4. VITAMIN AND MINERAL PRENATAL SUPPLEMENT W/ FOLIC ACID CAP [Concomitant]

REACTIONS (1)
  - URTICARIA [None]
